FAERS Safety Report 18007791 (Version 1)
Quarter: 2020Q3

REPORT INFORMATION
  Report Type: Spontaneous
  Country: US (occurrence: US)
  Receive Date: 20200710
  Receipt Date: 20200710
  Transmission Date: 20201103
  Serious: Yes (Other)
  Sender: FDA-Public Use
  Company Number: US-ASTRAZENECA-2020SE86337

PATIENT

DRUGS (1)
  1. PRILOSEC OTC [Suspect]
     Active Substance: OMEPRAZOLE MAGNESIUM
     Dosage: BEGINNING IN AT LEAST 2007
     Route: 048

REACTIONS (3)
  - Rebound acid hypersecretion [Unknown]
  - Gastric cancer [Unknown]
  - Renal failure [Unknown]
